FAERS Safety Report 26059793 (Version 1)
Quarter: 2025Q4

REPORT INFORMATION
  Report Type: Spontaneous
  Country: US (occurrence: US)
  Receive Date: 20251118
  Receipt Date: 20251118
  Transmission Date: 20260118
  Serious: No
  Sender: SANDOZ
  Company Number: US-SANDOZ-SDZ2025US085742

PATIENT
  Sex: Female

DRUGS (1)
  1. ZARXIO [Suspect]
     Active Substance: FILGRASTIM-SNDZ
     Indication: Product used for unknown indication
     Dosage: UNK, STRENGTH: 30MIU (ZARXIO 30MIU/0. 5ML 10LISY V1 US)
     Route: 065

REACTIONS (2)
  - Drug dose omission by device [Unknown]
  - Device breakage [Unknown]
